FAERS Safety Report 4807359-1 (Version None)
Quarter: 2005Q4

REPORT INFORMATION
  Report Type: 
  Country: None (occurrence: None)
  Receive Date: 20051020
  Receipt Date: 20051020
  Transmission Date: 20060501
  Serious: No
  Sender: FDA-Public Use
  Company Number: None

PATIENT
  Age: 47 Year
  Sex: Male
  Weight: 74 kg

DRUGS (6)
  1. TRETINOIN [Suspect]
     Dosage: 30 MG PO TID
     Route: 048
     Dates: start: 20050726, end: 20050920
  2. IDARUBICIN HCL [Concomitant]
  3. CYTARABINE [Concomitant]
  4. ABACAVIR SULFATE [Concomitant]
  5. LOPINAVIR [Concomitant]
  6. RITONAVIR [Concomitant]

REACTIONS (3)
  - DIFFICULTY IN WALKING [None]
  - HYPOAESTHESIA [None]
  - PARAESTHESIA [None]
